FAERS Safety Report 21382454 (Version 6)
Quarter: 2024Q3

REPORT INFORMATION
  Report Type: Report from Study
  Country: US (occurrence: US)
  Receive Date: 20220927
  Receipt Date: 20240708
  Transmission Date: 20241017
  Serious: Yes (Hospitalization, Other)
  Sender: ROCHE
  Company Number: US-ROCHE-3183857

PATIENT
  Age: 64 Year
  Sex: Female
  Weight: 136.08 kg

DRUGS (8)
  1. XOLAIR PFS [Suspect]
     Active Substance: OMALIZUMAB
     Indication: Asthma
     Dosage: INJECT 375MG SUBCUTANEOUSLY EVERY 28 DAY(S)
     Route: 058
  2. XOLAIR PFS [Suspect]
     Active Substance: OMALIZUMAB
     Indication: Immunology test abnormal
     Dosage: INJECT 375MG SUBCUTANEOUSLY EVERY 28 DAY(S)
     Route: 058
  3. XOLAIR PFS [Suspect]
     Active Substance: OMALIZUMAB
     Indication: Acute respiratory failure
     Route: 058
  4. XOLAIR PFS [Suspect]
     Active Substance: OMALIZUMAB
     Indication: Hypoxia
     Route: 058
  5. XOLAIR PFS [Suspect]
     Active Substance: OMALIZUMAB
     Route: 058
  6. XOLAIR PFS [Suspect]
     Active Substance: OMALIZUMAB
     Route: 058
  7. XOLAIR PFS [Suspect]
     Active Substance: OMALIZUMAB
     Route: 058
  8. XOLAIR PFS [Suspect]
     Active Substance: OMALIZUMAB
     Route: 058

REACTIONS (5)
  - Interstitial lung disease [Unknown]
  - Pneumonia [Unknown]
  - Pulmonary fibrosis [Unknown]
  - Pulmonary hypertension [Unknown]
  - Eosinophil count increased [Unknown]
